FAERS Safety Report 25655087 (Version 2)
Quarter: 2025Q3

REPORT INFORMATION
  Report Type: Spontaneous
  Country: US (occurrence: US)
  Receive Date: 20250807
  Receipt Date: 20250818
  Transmission Date: 20251020
  Serious: No
  Sender: SANOFI AVENTIS
  Company Number: US-SA-2025SA231886

PATIENT
  Age: 7 Year
  Sex: Male

DRUGS (2)
  1. DUPIXENT [Suspect]
     Active Substance: DUPILUMAB
     Indication: Eosinophilic oesophagitis
     Route: 058
     Dates: start: 202506, end: 202507
  2. DUPIXENT [Suspect]
     Active Substance: DUPILUMAB
     Dosage: 200 MG, QOW
     Route: 058
     Dates: start: 202506

REACTIONS (6)
  - Ocular hyperaemia [Not Recovered/Not Resolved]
  - Myalgia [Unknown]
  - Headache [Unknown]
  - Arthralgia [Not Recovered/Not Resolved]
  - Injection site rash [Recovered/Resolved]
  - Injection site pain [Recovered/Resolved]

NARRATIVE: CASE EVENT DATE: 20250101
